FAERS Safety Report 8986763 (Version 3)
Quarter: 2013Q1

REPORT INFORMATION
  Report Type: Report from Study
  Country: FR (occurrence: FR)
  Receive Date: 20121226
  Receipt Date: 20130122
  Transmission Date: 20140127
  Serious: Yes (Hospitalization)
  Sender: FDA-Public Use
  Company Number: FR-ROCHE-1172556

PATIENT
  Age: 62 Year
  Sex: Female
  Weight: 71 kg

DRUGS (8)
  1. RITUXIMAB [Suspect]
     Indication: B-CELL LYMPHOMA
     Route: 065
     Dates: start: 200706, end: 201210
  2. RITUXIMAB [Suspect]
     Indication: RHEUMATOID ARTHRITIS
     Route: 065
     Dates: start: 20080410, end: 20080827
  3. RITUXIMAB [Suspect]
     Route: 065
     Dates: start: 201204
  4. CYCLOPHOSPHAMIDE [Concomitant]
     Indication: B-CELL LYMPHOMA
     Route: 065
     Dates: start: 20080410, end: 20080827
  5. HYDROXYDAUNORUBICIN [Concomitant]
     Indication: B-CELL LYMPHOMA
     Route: 065
     Dates: start: 20080410, end: 20080827
  6. ONCOVIN [Concomitant]
     Indication: B-CELL LYMPHOMA
     Route: 065
     Dates: start: 20080410, end: 20080827
  7. PREDNISONE [Concomitant]
     Indication: B-CELL LYMPHOMA
     Route: 065
     Dates: start: 20080410, end: 20080827
  8. ZEVALIN [Concomitant]
     Route: 065
     Dates: start: 20081023

REACTIONS (1)
  - Metastatic bronchial carcinoma [Not Recovered/Not Resolved]
